FAERS Safety Report 5605923-3 (Version None)
Quarter: 2008Q1

REPORT INFORMATION
  Report Type: 
  Country: None (occurrence: None)
  Receive Date: 20080129
  Receipt Date: 20080124
  Transmission Date: 20080703
  Serious: Yes (Other)
  Sender: FDA-Public Use
  Company Number: US-ASTRAZENECA-2006UW07774

PATIENT
  Age: 54 Year
  Sex: Male
  Weight: 92.7 kg

DRUGS (5)
  1. SEROQUEL [Suspect]
     Indication: BIPOLAR DISORDER
     Route: 048
     Dates: start: 19990819, end: 20010719
  2. ABILIFY [Concomitant]
     Dates: start: 20060101, end: 20070101
  3. ZOLOFT [Concomitant]
     Dates: start: 20060101, end: 20070101
  4. LITHIUM CARBONATE [Concomitant]
     Dates: start: 20060101, end: 20070101
  5. ZYPREXA [Concomitant]
     Dates: start: 20021001, end: 20040526

REACTIONS (9)
  - COELIAC DISEASE [None]
  - DIABETES MELLITUS [None]
  - DYSPNOEA [None]
  - HYPERHIDROSIS [None]
  - INFECTION [None]
  - NEUROPATHY PERIPHERAL [None]
  - SPINAL OSTEOARTHRITIS [None]
  - VOMITING [None]
  - WEIGHT DECREASED [None]
